FAERS Safety Report 8444694-2 (Version None)
Quarter: 2012Q2

REPORT INFORMATION
  Report Type: 
  Country: None (occurrence: None)
  Receive Date: 20120323
  Receipt Date: 20110622
  Transmission Date: 20120825
  Serious: Yes (Hospitalization, Other)
  Sender: FDA-Public Use
  Company Number: 163-21880-11063031

PATIENT
  Age: 77 Year
  Sex: Male
  Weight: 49.8957 kg

DRUGS (7)
  1. OMEPRAZOLE [Concomitant]
  2. REVLIMID [Suspect]
     Indication: MULTIPLE MYELOMA
     Dosage: 25 MG, 21/7, PO
     Route: 048
     Dates: start: 20110606
  3. FLOMAX (TAMSULOSIN HYDROCHLORIDE) (UNKNOWN) [Concomitant]
  4. COREG (CARVEDILOL) (UNKNOWN) [Concomitant]
  5. ULTRAM (TRAMADOL HYDROCHLORIDE) (UNKNOWN) [Concomitant]
  6. AVODART (DUTASTERIDE) (UNKNOWN) [Concomitant]
  7. PEPCID (FAMOTIDINE) (UNKNOWN) [Concomitant]

REACTIONS (4)
  - CONSTIPATION [None]
  - BLOOD PRESSURE DECREASED [None]
  - MULTIPLE MYELOMA [None]
  - WEIGHT DECREASED [None]
